FAERS Safety Report 16257836 (Version 2)
Quarter: 2019Q2

REPORT INFORMATION
  Report Type: Other
  Country: ES (occurrence: ES)
  Receive Date: 20190430
  Receipt Date: 20190508
  Transmission Date: 20190711
  Serious: Yes (Other)
  Sender: FDA-Public Use
  Company Number: ES-SEATTLE GENETICS-2019SGN01312

PATIENT
  Age: 56 Year
  Sex: Male

DRUGS (7)
  1. PSORALEN [Suspect]
     Active Substance: PSORALEN
     Indication: CUTANEOUS T-CELL LYMPHOMA
     Dosage: UNK
     Route: 065
  2. ADCETRIS [Suspect]
     Active Substance: BRENTUXIMAB VEDOTIN
     Indication: CUTANEOUS T-CELL LYMPHOMA
     Dosage: UNK
     Route: 065
  3. UVADEX [Suspect]
     Active Substance: METHOXSALEN
     Indication: CUTANEOUS T-CELL LYMPHOMA
     Dosage: UNK
     Route: 050
  4. INTERFERON [Suspect]
     Active Substance: INTERFERON
     Indication: CUTANEOUS T-CELL LYMPHOMA
     Dosage: UNK
     Route: 065
  5. BEXAROTENE. [Suspect]
     Active Substance: BEXAROTENE
     Indication: CUTANEOUS T-CELL LYMPHOMA
     Dosage: UNK
     Route: 065
  6. ACENOCUMAROL [Concomitant]
     Active Substance: ACENOCOUMAROL
     Indication: PROTEIN C DEFICIENCY
     Dosage: UNK
     Route: 065
  7. GEMCITABINE W/OXALIPLATIN [Suspect]
     Active Substance: GEMCITABINE HYDROCHLORIDE\OXALIPLATIN
     Indication: CUTANEOUS T-CELL LYMPHOMA
     Dosage: UNK
     Route: 065

REACTIONS (2)
  - Leg amputation [Unknown]
  - Venous thrombosis [Unknown]
